FAERS Safety Report 5283707-6 (Version None)
Quarter: 2007Q2

REPORT INFORMATION
  Report Type: 
  Country: None (occurrence: None)
  Receive Date: 20070402
  Receipt Date: 20070312
  Transmission Date: 20071010
  Serious: Yes (Other)
  Sender: FDA-Public Use
  Company Number: US-SANOFI-SYNTHELABO-A03200702328

PATIENT
  Sex: Male

DRUGS (1)
  1. AMBIEN [Suspect]
     Indication: INSOMNIA
     Route: 048
     Dates: start: 20020224, end: 20060511

REACTIONS (5)
  - AMNESIA [None]
  - EATING DISORDER [None]
  - HELICOBACTER INFECTION [None]
  - HODGKIN'S DISEASE [None]
  - SLEEP WALKING [None]
